FAERS Safety Report 4923626-5 (Version None)
Quarter: 2006Q1

REPORT INFORMATION
  Report Type: 
  Country: None (occurrence: None)
  Receive Date: 20060227
  Receipt Date: 20050218
  Transmission Date: 20060701
  Serious: Yes (Hospitalization, Disabling)
  Sender: FDA-Public Use
  Company Number: US-MERCK-0502USA02875

PATIENT
  Age: 62 Year
  Sex: Male
  Weight: 139 kg

DRUGS (4)
  1. VIOXX [Suspect]
     Indication: BACK PAIN
     Route: 048
     Dates: start: 20000406, end: 20040901
  2. VIOXX [Suspect]
     Indication: PAIN IN EXTREMITY
     Route: 048
     Dates: start: 20000406, end: 20040901
  3. ALLOPURINOL [Concomitant]
     Indication: BACK PAIN
     Route: 048
  4. ALLOPURINOL [Concomitant]
     Indication: PAIN IN EXTREMITY
     Route: 048

REACTIONS (7)
  - CHOLECYSTECTOMY [None]
  - CORONARY ARTERY SURGERY [None]
  - GASTRIC BYPASS [None]
  - INJURY [None]
  - MYOCARDIAL INFARCTION [None]
  - OVERDOSE [None]
  - ULCER [None]
